FAERS Safety Report 4669439-3 (Version None)
Quarter: 2005Q2

REPORT INFORMATION
  Report Type: 
  Country: None (occurrence: None)
  Receive Date: 20050519
  Receipt Date: 20050411
  Transmission Date: 20051028
  Serious: Yes (Hospitalization)
  Sender: FDA-Public Use
  Company Number: 2005073920

PATIENT
  Sex: Female

DRUGS (2)
  1. BEXTRA [Suspect]
     Indication: ARTHRITIS
     Dosage: ORAL
     Route: 048
     Dates: start: 20040401
  2. BEXTRA       (PARECOXIB) [Suspect]
     Indication: ARTHRITIS
     Dates: start: 20040401

REACTIONS (4)
  - ABDOMINAL PAIN [None]
  - CHILLS [None]
  - DIVERTICULITIS [None]
  - HAEMORRHAGE [None]
